FAERS Safety Report 6275659-7 (Version None)
Quarter: 2009Q3

REPORT INFORMATION
  Report Type: 
  Country: None (occurrence: None)
  Receive Date: 20090721
  Receipt Date: 20090706
  Transmission Date: 20100115
  Serious: Yes (Hospitalization, Other)
  Sender: FDA-Public Use
  Company Number: BR-GENENTECH-287027

PATIENT
  Age: 48 Year
  Sex: Female

DRUGS (2)
  1. XOLAIR [Suspect]
     Indication: ASTHMA
     Dosage: UNK
     Dates: start: 20090706
  2. XOLAIR [Suspect]
     Dosage: 300 MG, 1/MONTH
     Route: 058
     Dates: start: 20090505

REACTIONS (5)
  - CONFUSIONAL STATE [None]
  - DIPLOPIA [None]
  - FACE OEDEMA [None]
  - PHARYNGITIS [None]
  - SOMNOLENCE [None]
